FAERS Safety Report 6130710-X (Version None)
Quarter: 2009Q1

REPORT INFORMATION
  Report Type: 
  Country: None (occurrence: None)
  Receive Date: 20090323
  Receipt Date: 20090305
  Transmission Date: 20090719
  Serious: Yes (Hospitalization)
  Sender: FDA-Public Use
  Company Number: 10000004938

PATIENT
  Age: 37 Year
  Sex: Male

DRUGS (5)
  1. CARBAMAZEPINE [Suspect]
     Dosage: 1000 MILLIGRAM (1000 MG); THREE MONTHS PRIOR TO ADMISSION - WHEN THE PATIENT  WAS ADMITTED
  2. LITHIUM CARBONATE [Concomitant]
  3. CLONAZEPAM [Concomitant]
  4. OLANZAPINE [Concomitant]
  5. VALPROIC ACID [Concomitant]

REACTIONS (12)
  - ANAEMIA [None]
  - ANISOCYTOSIS [None]
  - APLASIA PURE RED CELL [None]
  - ASTHENIA [None]
  - BLOOD CHOLESTEROL INCREASED [None]
  - BLOOD ERYTHROPOIETIN INCREASED [None]
  - BLOOD IRON INCREASED [None]
  - BLOOD TRIGLYCERIDES INCREASED [None]
  - GAMMA-GLUTAMYLTRANSFERASE INCREASED [None]
  - HYPOCHROMASIA [None]
  - RED BLOOD CELL ROULEAUX FORMATION PRESENT [None]
  - RETICULOCYTE COUNT DECREASED [None]
